FAERS Safety Report 19398159 (Version 1)
Quarter: 2021Q2

REPORT INFORMATION
  Report Type: Spontaneous
  Country: US (occurrence: US)
  Receive Date: 20210610
  Receipt Date: 20210610
  Transmission Date: 20210717
  Serious: No
  Sender: FDA-Public Use
  Company Number: US-JNJFOC-20210552141

PATIENT

DRUGS (2)
  1. PEPCID [Suspect]
     Active Substance: FAMOTIDINE
     Indication: ULCER
     Route: 065
  2. ORAP [Concomitant]
     Active Substance: PIMOZIDE
     Indication: TOURETTE^S DISORDER
     Route: 065

REACTIONS (5)
  - Rash [Not Recovered/Not Resolved]
  - Mental status changes [Unknown]
  - Product use in unapproved indication [Unknown]
  - Insomnia [Unknown]
  - Diarrhoea [Recovered/Resolved]
